FAERS Safety Report 5447195-9 (Version None)
Quarter: 2007Q3

REPORT INFORMATION
  Report Type: 
  Country: None (occurrence: None)
  Receive Date: 20070910
  Receipt Date: 20070831
  Transmission Date: 20080115
  Serious: Yes (Hospitalization, Other)
  Sender: FDA-Public Use
  Company Number: PHEH2007US10814

PATIENT
  Age: 67 Year
  Sex: Female
  Weight: 63.492 kg

DRUGS (16)
  1. FORADIL [Suspect]
     Indication: CHRONIC OBSTRUCTIVE PULMONARY DISEASE
     Dosage: ONE CAPSULE, BID
     Dates: start: 20010101, end: 20070803
  2. COMBIVENT [Concomitant]
  3. SYNTHROID [Concomitant]
  4. CORGARD [Concomitant]
  5. PROTONIX [Concomitant]
  6. CARAFATE [Concomitant]
  7. MUCINEX [Concomitant]
  8. DOXYCYCLINE [Concomitant]
  9. OMEGA 3 [Concomitant]
  10. CENTRUM [Concomitant]
  11. CALCIUM [Concomitant]
     Indication: SUPPLEMENTATION THERAPY
  12. LOVAZA [Suspect]
     Indication: HYPERTRIGLYCERIDAEMIA
     Dosage: 2 G, QD
     Dates: start: 20070601, end: 20070701
  13. LOVAZA [Suspect]
     Dosage: 2 G, QOD
     Dates: start: 20070701
  14. LOVAZA [Suspect]
     Dosage: 2 G, QOD
     Dates: start: 20070701
  15. ASPIRIN [Concomitant]
  16. LINSEED OIL [Concomitant]

REACTIONS (12)
  - ABDOMINAL PAIN UPPER [None]
  - BACK PAIN [None]
  - CHEST PAIN [None]
  - DIZZINESS [None]
  - DYSPNOEA [None]
  - FATIGUE [None]
  - HEADACHE [None]
  - HEART RATE IRREGULAR [None]
  - INSOMNIA [None]
  - NAUSEA [None]
  - PULMONARY THROMBOSIS [None]
  - SYNCOPE [None]
